FAERS Safety Report 8623010-7 (Version None)
Quarter: 2012Q3

REPORT INFORMATION
  Report Type: 
  Country: None (occurrence: None)
  Receive Date: 20120827
  Receipt Date: 20120818
  Transmission Date: 20120928
  Serious: Yes (Hospitalization, Other)
  Sender: FDA-Public Use
  Company Number: US-BAYER-2012-026933

PATIENT
  Age: 30 Year
  Sex: Female

DRUGS (2)
  1. YASMIN [Suspect]
     Indication: CONTRACEPTION
     Dosage: UNK
     Dates: start: 20060601, end: 20090901
  2. PRILOSEC [Concomitant]

REACTIONS (7)
  - ABDOMINAL PAIN [None]
  - INJURY [None]
  - EMOTIONAL DISTRESS [None]
  - CHOLELITHIASIS [None]
  - BILE DUCT STONE [None]
  - PAIN [None]
  - CHOLECYSTITIS CHRONIC [None]
